FAERS Safety Report 9036981 (Version 3)
Quarter: 2013Q1

REPORT INFORMATION
  Report Type: Spontaneous
  Country: IE (occurrence: None)
  Receive Date: 20121213
  Receipt Date: 20130329
  Transmission Date: 20140127
  Serious: Yes (Other)
  Sender: FDA-Public Use
  Company Number: 2012034203

PATIENT
  Age: 34 Year
  Sex: Female

DRUGS (1)
  1. RHOPHYLAC [Suspect]
     Indication: VAGINAL HAEMORRHAGE
     Route: 030
     Dates: end: 20121009

REACTIONS (1)
  - Rhesus antibodies positive [None]
